FAERS Safety Report 9410096 (Version 1)
Quarter: 2013Q3

REPORT INFORMATION
  Report Type: Spontaneous
  Country: AU (occurrence: AU)
  Receive Date: 20130719
  Receipt Date: 20130719
  Transmission Date: 20140515
  Serious: Yes (Hospitalization)
  Sender: FDA-Public Use
  Company Number: PHHY2013AU076375

PATIENT
  Age: 9 Year
  Sex: Male
  Weight: 28.2 kg

DRUGS (4)
  1. OMEPRAZOLE [Suspect]
     Dosage: 15 MG, UNK
     Dates: start: 20130322
  2. PREDNISOLONE [Suspect]
     Dates: end: 20130322
  3. PREDNISOLONE [Concomitant]
     Dosage: 50 MG, UNK
     Dates: end: 20130322
  4. TRIMETHOPRIM SULFAMETHOXAZOLE [Concomitant]
     Dates: end: 20130307

REACTIONS (11)
  - Mesenteric neoplasm [Recovered/Resolved]
  - Nephrotic syndrome [Recovered/Resolved]
  - Lactic acidosis [Recovered/Resolved]
  - Shock [Recovered/Resolved]
  - Abdominal pain [Recovered/Resolved]
  - Abdominal distension [Recovered/Resolved]
  - Anuria [Recovered/Resolved]
  - Haematemesis [Recovered/Resolved]
  - Hypotension [Recovered/Resolved]
  - Haemodynamic instability [Recovered/Resolved]
  - Tachycardia [Recovered/Resolved]
